FAERS Safety Report 4662098-5 (Version None)
Quarter: 2005Q2

REPORT INFORMATION
  Report Type: 
  Country: None (occurrence: None)
  Receive Date: 20050512
  Receipt Date: 20050427
  Transmission Date: 20051028
  Serious: Yes (Other)
  Sender: FDA-Public Use
  Company Number: 2005BI008587

PATIENT
  Sex: Male

DRUGS (1)
  1. AVONEX [Suspect]
     Indication: MULTIPLE SCLEROSIS
     Dosage: IM
     Route: 030
     Dates: start: 19990101

REACTIONS (6)
  - AMNESIA [None]
  - CARDIAC VALVE DISEASE [None]
  - INSOMNIA [None]
  - NASOPHARYNGITIS [None]
  - SINUS DISORDER [None]
  - TREMOR [None]
